FAERS Safety Report 17867573 (Version 3)
Quarter: 2020Q2

REPORT INFORMATION
  Report Type: Spontaneous
  Country: FR (occurrence: FR)
  Receive Date: 20200605
  Receipt Date: 20200622
  Transmission Date: 20200714
  Serious: Yes (Death, Other)
  Sender: FDA-Public Use
  Company Number: FR-TAKEDA-2020TUS025145

PATIENT
  Age: 85 Year
  Sex: Female

DRUGS (6)
  1. VELCADE [Suspect]
     Active Substance: BORTEZOMIB
     Indication: PLASMA CELL MYELOMA
     Dosage: UNK
     Route: 042
     Dates: start: 20200305, end: 20200414
  2. PREGABALINE [Suspect]
     Active Substance: PREGABALIN
     Indication: ANXIETY
     Dosage: 75 MILLIGRAM, QD
     Route: 048
     Dates: start: 20200326, end: 20200414
  3. ESCITALOPRAM [Suspect]
     Active Substance: ESCITALOPRAM OXALATE
     Indication: DEPRESSION
     Dosage: 10 MILLIGRAM, QD
     Route: 048
     Dates: start: 20200304, end: 20200415
  4. REVLIMID [Suspect]
     Active Substance: LENALIDOMIDE
     Indication: PLASMA CELL MYELOMA
     Dosage: 10 MILLIGRAM, QD
     Route: 048
     Dates: start: 20200305, end: 20200325
  5. REVLIMID [Suspect]
     Active Substance: LENALIDOMIDE
     Dosage: UNK
     Route: 048
     Dates: start: 20200411
  6. MEROPENEM. [Suspect]
     Active Substance: MEROPENEM
     Indication: INFECTION
     Dosage: UNK
     Route: 042
     Dates: start: 20200330, end: 20200408

REACTIONS (19)
  - Chronic myelomonocytic leukaemia [Unknown]
  - Eosinophilia [Not Recovered/Not Resolved]
  - Inflammation [Unknown]
  - Rash pustular [Recovered/Resolved with Sequelae]
  - Lactic acidosis [Unknown]
  - Xerosis [Unknown]
  - Sepsis [Unknown]
  - Diarrhoea [Unknown]
  - Multiple organ dysfunction syndrome [Fatal]
  - Renal impairment [Unknown]
  - Fungal skin infection [Recovered/Resolved]
  - Skin haemorrhage [Not Recovered/Not Resolved]
  - Decreased appetite [Unknown]
  - Skin exfoliation [Not Recovered/Not Resolved]
  - Hyperkalaemia [Unknown]
  - Rash [Not Recovered/Not Resolved]
  - Urinary tract infection [Unknown]
  - Vomiting [Unknown]
  - Skin lesion [Recovered/Resolved]

NARRATIVE: CASE EVENT DATE: 202003
